FAERS Safety Report 17459696 (Version 1)
Quarter: 2020Q1

REPORT INFORMATION
  Report Type: Spontaneous
  Country: US (occurrence: US)
  Receive Date: 20200225
  Receipt Date: 20200225
  Transmission Date: 20200409
  Serious: No
  Sender: FDA-Public Use
  Company Number: US-ROCHE-2336608

PATIENT
  Sex: Male

DRUGS (2)
  1. NUTROPIN AQ [Suspect]
     Active Substance: SOMATROPIN
     Indication: CROHN^S DISEASE
     Dosage: NUSPIN 5 PEN, STRENGTH: 5MG/2ML
     Route: 058
     Dates: start: 20190513
  2. NUTROPIN AQ [Suspect]
     Active Substance: SOMATROPIN
     Indication: MALABSORPTION

REACTIONS (4)
  - No adverse event [Unknown]
  - Poor quality product administered [Unknown]
  - Intentional product use issue [Unknown]
  - Off label use [Unknown]
